FAERS Safety Report 6537135-3 (Version None)
Quarter: 2010Q1

REPORT INFORMATION
  Report Type: 
  Country: None (occurrence: None)
  Receive Date: 20100114
  Receipt Date: 20100112
  Transmission Date: 20100710
  Serious: Yes (Hospitalization)
  Sender: FDA-Public Use
  Company Number: JP-BAYER-200915094BYL

PATIENT
  Age: 82 Year
  Sex: Female
  Weight: 39 kg

DRUGS (15)
  1. NEXAVAR [Suspect]
     Indication: HEPATIC NEOPLASM MALIGNANT
     Dosage: TOTAL DAILY DOSE: 800 MG  UNIT DOSE: 200 MG
     Route: 048
     Dates: start: 20090717, end: 20090804
  2. NEXAVAR [Suspect]
     Dosage: UNIT DOSE: 200 MG
     Route: 048
     Dates: start: 20090804, end: 20090826
  3. NEXAVAR [Suspect]
     Dosage: UNIT DOSE: 200 MG
     Route: 048
     Dates: start: 20090924, end: 20091007
  4. NEXAVAR [Suspect]
     Dosage: UNIT DOSE: 200 MG
     Route: 048
     Dates: start: 20090826, end: 20090909
  5. NEXAVAR [Suspect]
     Dosage: UNIT DOSE: 200 MG
     Route: 048
     Dates: start: 20091021
  6. SERMION [Concomitant]
     Dosage: BEFORE NEXAVAR ADMINISTRATION
     Route: 048
  7. JUVELA N [Concomitant]
     Dosage: BEFORE NEXAVAR ADMINISTRATION
     Route: 048
  8. URSO 250 [Concomitant]
     Dosage: BEFORE NEXAVAR ADMINISTRATION
     Route: 048
  9. SEDIEL [Concomitant]
     Dosage: BEFORE NEXAVAR ADMINISTRATION
     Route: 048
  10. MARZULENE-S [Concomitant]
     Dosage: BEFORE NEXAVAR ADMINISTRATION
     Route: 048
  11. WYPAX [Concomitant]
     Dosage: BEFORE NEXAVAR ADMINISTRATION
     Route: 048
  12. GASTER [Concomitant]
     Dosage: BEFORE NEXAVAR ADMINISTRATION
     Route: 048
  13. KAMAG G [Concomitant]
     Dosage: BEFORE NEXAVAR ADMINISTRATION
     Route: 048
  14. PYDOXAL [Concomitant]
     Indication: PROPHYLAXIS
     Route: 048
     Dates: start: 20090722
  15. KENALOG [Concomitant]
     Route: 061
     Dates: start: 20090806

REACTIONS (4)
  - DYSPHONIA [None]
  - LIVER DISORDER [None]
  - PALMAR-PLANTAR ERYTHRODYSAESTHESIA SYNDROME [None]
  - PLATELET COUNT DECREASED [None]
